FAERS Safety Report 7087107-8 (Version None)
Quarter: 2010Q4

REPORT INFORMATION
  Report Type: 
  Country: None (occurrence: None)
  Receive Date: 20101106
  Receipt Date: 20101027
  Transmission Date: 20110411
  Serious: No
  Sender: FDA-Public Use
  Company Number: US-WYE-H18431010

PATIENT
  Sex: Female

DRUGS (2)
  1. PRISTIQ [Suspect]
     Dosage: UNKNOWN
     Dates: end: 20100101
  2. PRISTIQ [Suspect]
     Dosage: RESTARTED AT AN UNKNOWN DOSE
     Dates: start: 20101021

REACTIONS (7)
  - ASTHENOPIA [None]
  - DRUG EFFECT DECREASED [None]
  - DRUG WITHDRAWAL SYNDROME [None]
  - ENERGY INCREASED [None]
  - FATIGUE [None]
  - IMPAIRED WORK ABILITY [None]
  - VISION BLURRED [None]
